FAERS Safety Report 7778656 (Version 3)
Quarter: 2013Q1

REPORT INFORMATION
  Report Type: Spontaneous
  Country: US (occurrence: US)
  Receive Date: 20110128
  Receipt Date: 20130208
  Transmission Date: 20140127
  Serious: Yes (Hospitalization, Other)
  Sender: FDA-Public Use
  Company Number: US-ASTRAZENECA-2011SE03800

PATIENT
  Age: 68 Year
  Sex: Male
  Weight: 83.9 kg

DRUGS (11)
  1. NEXIUM [Suspect]
     Indication: GASTROOESOPHAGEAL REFLUX DISEASE
     Route: 048
     Dates: start: 1993
  2. NEXIUM [Suspect]
     Indication: GASTROOESOPHAGEAL REFLUX DISEASE
     Route: 048
  3. PRILOSEC [Suspect]
     Indication: GASTROOESOPHAGEAL REFLUX DISEASE
     Route: 048
     Dates: start: 2007, end: 2007
  4. PRILOSEC [Suspect]
     Indication: GASTROOESOPHAGEAL REFLUX DISEASE
     Route: 048
     Dates: start: 2011, end: 2011
  5. PANTOPRAZOLE [Concomitant]
  6. METOCLOPRAMIDE [Concomitant]
  7. LANSOPRAZOLE [Concomitant]
  8. LANTUS [Concomitant]
     Indication: DIABETES MELLITUS
     Route: 058
  9. VITAMINS [Concomitant]
     Dosage: DAILY
     Route: 048
  10. TUMS [Concomitant]
  11. MILK OF MEGNESIUM [Concomitant]

REACTIONS (8)
  - Prostate cancer [Recovered/Resolved]
  - Hypertension [Unknown]
  - Diabetes mellitus [Unknown]
  - Gallbladder disorder [Recovered/Resolved]
  - Drug intolerance [Unknown]
  - Malaise [Unknown]
  - Drug ineffective [Unknown]
  - Off label use [Unknown]
